FAERS Safety Report 25036206 (Version 1)
Quarter: 2025Q1

REPORT INFORMATION
  Report Type: Spontaneous
  Country: US (occurrence: US)
  Receive Date: 20250304
  Receipt Date: 20250304
  Transmission Date: 20250408
  Serious: Yes (Other)
  Sender: SAMSUNG BIOEPIS
  Company Number: US-SAMSUNG BIOEPIS-SB-2025-07752

PATIENT

DRUGS (1)
  1. INFLIXIMAB [Suspect]
     Active Substance: INFLIXIMAB
     Indication: Inflammatory bowel disease
     Dosage: 7 MG (PLUS OR MINUS 4.0 MG)/ KG;

REACTIONS (3)
  - Eosinophilic oesophagitis [Unknown]
  - Drug ineffective for unapproved indication [Unknown]
  - Off label use [Unknown]
